FAERS Safety Report 13109843 (Version 1)
Quarter: 2017Q1

REPORT INFORMATION
  Report Type: Spontaneous
  Country: US (occurrence: US)
  Receive Date: 20170112
  Receipt Date: 20170112
  Transmission Date: 20170428
  Serious: Yes (Other)
  Sender: FDA-Public Use
  Company Number: US-ROCHE-1100473

PATIENT
  Age: 53 Year
  Sex: Male

DRUGS (4)
  1. NITRO [Concomitant]
     Active Substance: NITROGLYCERIN
     Dosage: 50 MG IN 500 CC DSW AT 5 CC
     Route: 042
  2. ACTIVASE [Suspect]
     Active Substance: ALTEPLASE
     Dosage: OVER 1 HOUR
     Route: 065
  3. ACTIVASE [Suspect]
     Active Substance: ALTEPLASE
     Indication: ACUTE MYOCARDIAL INFARCTION
     Route: 065
  4. ACTIVASE [Suspect]
     Active Substance: ALTEPLASE
     Dosage: OVER 1/2 AN HOUR
     Route: 065

REACTIONS (3)
  - Atrial fibrillation [Unknown]
  - Hypotension [Unknown]
  - Ventricular tachycardia [Unknown]
